FAERS Safety Report 6972192-1 (Version None)
Quarter: 2010Q3

REPORT INFORMATION
  Report Type: 
  Country: None (occurrence: None)
  Receive Date: 20100909
  Receipt Date: 20100831
  Transmission Date: 20110219
  Serious: No
  Sender: FDA-Public Use
  Company Number: US-BIOGENIDEC-2010BI030145

PATIENT
  Age: 67 Year
  Sex: Female

DRUGS (3)
  1. AVONEX [Suspect]
     Indication: MULTIPLE SCLEROSIS
     Route: 030
     Dates: start: 20100813, end: 20100820
  2. AVONEX [Suspect]
     Route: 030
     Dates: start: 20100820, end: 20100827
  3. AVONEX [Suspect]
     Route: 030
     Dates: start: 20100827

REACTIONS (5)
  - HEADACHE [None]
  - INSOMNIA [None]
  - JOINT STIFFNESS [None]
  - MUSCLE SPASMS [None]
  - MUSCULOSKELETAL STIFFNESS [None]
